FAERS Safety Report 18767156 (Version 12)
Quarter: 2022Q1

REPORT INFORMATION
  Report Type: Report from Study
  Country: FR (occurrence: FR)
  Receive Date: 20210121
  Receipt Date: 20220323
  Transmission Date: 20220423
  Serious: Yes (Other)
  Sender: FDA-Public Use
  Company Number: FR-JNJFOC-20210118938

PATIENT
  Age: 37 Year
  Sex: Female
  Weight: 132 kg

DRUGS (16)
  1. SPRAVATO [Suspect]
     Active Substance: ESKETAMINE
     Indication: Depression
     Dosage: 2 DOSES
     Dates: start: 20200415, end: 20200417
  2. SPRAVATO [Suspect]
     Active Substance: ESKETAMINE
     Dosage: 1 DOSE
     Dates: start: 20200422, end: 20200422
  3. SPRAVATO [Suspect]
     Active Substance: ESKETAMINE
     Dosage: 26 DOSES
     Dates: start: 20200424, end: 20200506
  4. SPRAVATO [Suspect]
     Active Substance: ESKETAMINE
     Dates: start: 20200511, end: 20200615
  5. SPRAVATO [Suspect]
     Active Substance: ESKETAMINE
     Dosage: 8 DOSES
     Dates: start: 20201110, end: 20201228
  6. RISPERDAL [Concomitant]
     Active Substance: RISPERIDONE
     Indication: Drug therapy
     Dates: start: 20200224
  7. RISPERDAL [Concomitant]
     Active Substance: RISPERIDONE
     Dates: start: 20200212, end: 20200522
  8. RISPERDAL [Concomitant]
     Active Substance: RISPERIDONE
     Dates: start: 20200523
  9. LAMICTAL [Concomitant]
     Active Substance: LAMOTRIGINE
     Indication: Drug therapy
     Dates: start: 20200130
  10. DIAZEPAM [Concomitant]
     Active Substance: DIAZEPAM
     Indication: Anxiolytic therapy
     Dates: start: 20171219
  11. SERTRALINE [Concomitant]
     Active Substance: SERTRALINE HYDROCHLORIDE
     Indication: Depression
     Dates: start: 20200923, end: 20201117
  12. FLUOXETINE [Concomitant]
     Active Substance: FLUOXETINE HYDROCHLORIDE
     Indication: Depression
     Dates: start: 20201117, end: 20201215
  13. TERALITHE [Concomitant]
     Active Substance: LITHIUM CARBONATE
     Dates: start: 20200909
  14. ESOMEPRAZOLE MAGNESIUM [Concomitant]
     Active Substance: ESOMEPRAZOLE MAGNESIUM
     Indication: Gastrointestinal disorder therapy
     Dates: start: 20200722
  15. CLOMIPRAMINE [Concomitant]
     Active Substance: CLOMIPRAMINE
     Indication: Antidepressant therapy
     Dates: start: 20181107, end: 20200616
  16. MIRTAZAPINE [Concomitant]
     Active Substance: MIRTAZAPINE
     Indication: Antidepressant therapy
     Dates: start: 20190701

REACTIONS (10)
  - Suicidal ideation [Recovered/Resolved]
  - Feeling abnormal [Recovered/Resolved]
  - Anxiety [Recovered/Resolved]
  - Derealisation [Recovered/Resolved]
  - Vertigo [Recovered/Resolved]
  - Dissociation [Recovered/Resolved]
  - Somnolence [Recovered/Resolved]
  - Drug ineffective [Recovered/Resolved]
  - Product use issue [Unknown]
  - Off label use [Unknown]

NARRATIVE: CASE EVENT DATE: 20200415
